FAERS Safety Report 9331797 (Version 1)
Quarter: 2013Q2

REPORT INFORMATION
  Report Type: Spontaneous
  Country: US (occurrence: None)
  Receive Date: 20130603
  Receipt Date: 20130603
  Transmission Date: 20140414
  Serious: Yes (Other)
  Sender: FDA-Public Use
  Company Number: USA/USA/13/0029737

PATIENT
  Age: 53 Year
  Sex: Female

DRUGS (5)
  1. ANASTROZOLE [Suspect]
     Indication: BREAST CANCER
  2. ASPIRIN (ACETYLSALICYLIC ACID) [Concomitant]
  3. VITAMIN D (ERGOCALCIFEROL) [Concomitant]
  4. CALCIUM CITRATE (CALCIUM CITRATE) [Concomitant]
     Indication: PRODUCT USED FOR UNKNOWN INDICATION
     Dosage: 600 MG , 1 IN 1 D, UNKNOWN
  5. POST-COITAL NITROFURANTOIN (NITROPURANTOIN) [Concomitant]
     Dosage: UNKNOWN, AS REQUIRED, UNKNOWN

REACTIONS (7)
  - Anhedonia [None]
  - Genital discomfort [None]
  - Pain [None]
  - Vaginal haemorrhage [None]
  - Dysuria [None]
  - Atrophic vulvovaginitis [None]
  - Vulval disorder [None]
